FAERS Safety Report 5272483-9 (Version None)
Quarter: 2007Q1

REPORT INFORMATION
  Report Type: 
  Country: None (occurrence: None)
  Receive Date: 20070322
  Receipt Date: 20060118
  Transmission Date: 20070707
  Serious: No
  Sender: FDA-Public Use
  Company Number: US-BRISTOL-MYERS SQUIBB COMPANY-13250428

PATIENT
  Sex: Female
  Weight: 63 kg

DRUGS (7)
  1. KENALOG [Suspect]
     Indication: BACK PAIN
     Route: 008
     Dates: start: 20050921
  2. KENALOG [Suspect]
     Dates: start: 20051130
  3. KENALOG [Suspect]
     Dates: start: 20051213
  4. PREVACID [Concomitant]
  5. ATENOLOL [Concomitant]
  6. ACTONEL [Concomitant]
  7. CHILDRENS ASPIRIN [Concomitant]

REACTIONS (1)
  - CUSHINGOID [None]
